FAERS Safety Report 7580473-6 (Version None)
Quarter: 2011Q2

REPORT INFORMATION
  Report Type: 
  Country: None (occurrence: None)
  Receive Date: 20110629
  Receipt Date: 20110620
  Transmission Date: 20111010
  Serious: Yes (Other)
  Sender: FDA-Public Use
  Company Number: A0923601A

PATIENT
  Age: 66 Year
  Sex: Male

DRUGS (7)
  1. ATIVAN [Concomitant]
  2. VENTOLIN HFA [Concomitant]
  3. ADVAIR DISKUS 100/50 [Suspect]
     Dosage: 1PUFF TWICE PER DAY
     Route: 055
     Dates: start: 19990101
  4. ASPIRIN [Concomitant]
  5. SINGULAIR [Concomitant]
  6. BENADRYL [Concomitant]
  7. FLUTICASONE PROPIONATE [Concomitant]

REACTIONS (3)
  - PRODUCT QUALITY ISSUE [None]
  - ASTHMA [None]
  - DYSPNOEA [None]
